FAERS Safety Report 5229370-1 (Version None)
Quarter: 2007Q1

REPORT INFORMATION
  Report Type: 
  Country: None (occurrence: None)
  Receive Date: 20061201
  Receipt Date: 20060912
  Transmission Date: 20070707
  Serious: No
  Sender: FDA-Public Use
  Company Number: 2006PV021098

PATIENT
  Age: 71 Year
  Sex: Female

DRUGS (3)
  1. BYETTA [Suspect]
     Indication: DIABETES MELLITUS NON-INSULIN-DEPENDENT
     Dosage: 5 MCG; BID; SC
     Route: 058
     Dates: start: 20060908
  2. AVANDIA [Concomitant]
  3. GLYBURIDE AND METFORMIN HCL [Concomitant]

REACTIONS (4)
  - EYE ALLERGY [None]
  - NAUSEA [None]
  - RHINITIS ALLERGIC [None]
  - VOMITING [None]
